FAERS Safety Report 15241055 (Version 1)
Quarter: 2018Q3

REPORT INFORMATION
  Report Type: Spontaneous
  Country: ES (occurrence: ES)
  Receive Date: 20180804
  Receipt Date: 20180804
  Transmission Date: 20181010
  Serious: Yes (Death, Life-Threatening, Hospitalization, Other)
  Sender: FDA-Public Use
  Company Number: ES-SAKK-2018SA141117AA

PATIENT
  Age: 56 Year
  Sex: Male

DRUGS (9)
  1. FLUDARABINE PHOSPHATE. [Suspect]
     Active Substance: FLUDARABINE PHOSPHATE
     Indication: PLASMA CELL MYELOMA
     Dosage: 30 MG/M2; CYCLIC
     Dates: start: 2015
  2. THYMOGLOBULINE [Suspect]
     Active Substance: LAPINE T-LYMPHOCYTE IMMUNE GLOBULIN
     Indication: PLASMA CELL MYELOMA
     Dosage: CYCLIC
     Dates: start: 2015
  3. CYCLOPHOSPHAMIDE. [Suspect]
     Active Substance: CYCLOPHOSPHAMIDE
     Indication: PLASMA CELL MYELOMA
     Dosage: CYCLIC 500 MG; ON 3 DAYS SPACED OVER ONE WEEK AND OVER 4 DAYS
     Route: 065
  4. DEXAMETHASONE SALT NOT SPECIFIED [Suspect]
     Active Substance: DEXAMETHASONE
     Indication: PLASMA CELL MYELOMA
     Dosage: CYCLIC 40 MG; EVERY 2 DAYS FOR 12 DAYS
  5. FLUDARABINE PHOSPHATE. [Suspect]
     Active Substance: FLUDARABINE PHOSPHATE
     Indication: BONE MARROW CONDITIONING REGIMEN
  6. MELPHALAN. [Suspect]
     Active Substance: MELPHALAN
     Indication: PLASMA CELL MYELOMA
     Dosage: 150 MG/M2; CYCLIC; INFUSION
     Route: 041
     Dates: start: 2015
  7. MELPHALAN. [Suspect]
     Active Substance: MELPHALAN
     Indication: BONE MARROW CONDITIONING REGIMEN
     Dosage: 70 MG/M2; CYCLIC, INFUSION
     Dates: start: 2015
  8. BORTEZOMIB. [Suspect]
     Active Substance: BORTEZOMIB
     Indication: PLASMA CELL MYELOMA
     Dosage: 1.3 MG/M2 EVERY 4 DAYS (CYCLIC)
     Dates: start: 2015
  9. BORTEZOMIB. [Suspect]
     Active Substance: BORTEZOMIB
     Indication: BONE MARROW CONDITIONING REGIMEN
     Dosage: 1.3 MG/M2 CYCLIC

REACTIONS (10)
  - Skin lesion [Fatal]
  - Aspergillus test [Fatal]
  - Dyspnoea [Fatal]
  - Aphasia [Fatal]
  - Blister [Fatal]
  - Hemiparesis [Fatal]
  - Rash erythematous [Fatal]
  - Cerebrovascular accident [Fatal]
  - Nodule [Fatal]
  - Bronchopulmonary aspergillosis [Fatal]
